FAERS Safety Report 9336798 (Version 1)
Quarter: 2013Q2

REPORT INFORMATION
  Report Type: Spontaneous
  Country: IT (occurrence: IT)
  Receive Date: 20130607
  Receipt Date: 20130607
  Transmission Date: 20140414
  Serious: Yes (Other)
  Sender: FDA-Public Use
  Company Number: PHHY2013IT057332

PATIENT
  Age: 43 Year
  Sex: Male

DRUGS (1)
  1. RISPERIDONE [Suspect]
     Indication: MANIA
     Dosage: 3 MG, QD
     Dates: start: 20110318, end: 20120517

REACTIONS (1)
  - Psychotic behaviour [Recovered/Resolved]
